FAERS Safety Report 10202646 (Version 4)
Quarter: 2015Q3

REPORT INFORMATION
  Report Type: Spontaneous
  Country: US (occurrence: US)
  Receive Date: 20140528
  Receipt Date: 20150924
  Transmission Date: 20151125
  Serious: Yes (Hospitalization, Disabling, Other)
  Sender: FDA-Public Use
  Company Number: US-009507513-1405USA011590

PATIENT
  Sex: Female
  Weight: 90.7 kg

DRUGS (5)
  1. SCHIFF MOVE FREE JOINT STRENGTHENER [Concomitant]
     Indication: ROUTINE HEALTH MAINTENANCE
     Dosage: GLUCOSAMIN 1500 MG, CHONDROITIN 200 MG
     Route: 065
     Dates: start: 1990
  2. FOSAMAX [Suspect]
     Active Substance: ALENDRONATE SODIUM
     Indication: OSTEOPOROSIS PROPHYLAXIS
     Dosage: 10 MG, QD
     Route: 048
     Dates: start: 1996, end: 200411
  3. VITAMIN D [Concomitant]
     Active Substance: CHOLECALCIFEROL
     Indication: ROUTINE HEALTH MAINTENANCE
     Dosage: 200 MG, UNKNOWN
     Route: 065
     Dates: start: 1990
  4. CALCIUM (UNSPECIFIED) [Concomitant]
     Active Substance: CALCIUM
     Indication: ROUTINE HEALTH MAINTENANCE
     Dosage: 600 MG, UNKNOWN
     Route: 065
     Dates: start: 1990
  5. UBIDECARENONE [Concomitant]
     Active Substance: UBIDECARENONE
     Indication: ROUTINE HEALTH MAINTENANCE
     Dosage: UNK, UNKNOWN
     Route: 065
     Dates: start: 1990

REACTIONS (10)
  - Intramedullary rod insertion [Unknown]
  - Femur fracture [Not Recovered/Not Resolved]
  - Femur fracture [Not Recovered/Not Resolved]
  - Osteoarthritis [Unknown]
  - Blood cholesterol increased [Unknown]
  - Osteoporosis [Not Recovered/Not Resolved]
  - Cardiac valve disease [Unknown]
  - Tooth disorder [Unknown]
  - Medical device complication [Unknown]
  - Arthritis [Unknown]

NARRATIVE: CASE EVENT DATE: 20030813
